FAERS Safety Report 9570592 (Version 1)
Quarter: 2013Q4

REPORT INFORMATION
  Report Type: Report from Study
  Country: NO (occurrence: NO)
  Receive Date: 20131001
  Receipt Date: 20131001
  Transmission Date: 20140711
  Serious: Yes (Congenital Anomaly)
  Sender: FDA-Public Use
  Company Number: PHHY2013NO106003

PATIENT
  Sex: 0

DRUGS (1)
  1. LEVETIRACETAM [Suspect]
     Indication: EPILEPSY
     Route: 064

REACTIONS (3)
  - Atrial septal defect [Unknown]
  - Ventricular septal defect [Unknown]
  - Foetal exposure during pregnancy [Recovered/Resolved]
